FAERS Safety Report 5263661-3 (Version None)
Quarter: 2007Q1

REPORT INFORMATION
  Report Type: 
  Country: None (occurrence: None)
  Receive Date: 20070312
  Receipt Date: 20070312
  Transmission Date: 20070707
  Serious: No
  Sender: FDA-Public Use
  Company Number: None

PATIENT
  Age: 62 Year
  Sex: Female

DRUGS (1)
  1. BONIVA [Suspect]
     Dosage: TABLET

REACTIONS (6)
  - DEPRESSION [None]
  - INFLUENZA LIKE ILLNESS [None]
  - MEDICATION ERROR [None]
  - PAIN [None]
  - PAIN IN EXTREMITY [None]
  - SUICIDAL IDEATION [None]
